FAERS Safety Report 8863524 (Version 1)
Quarter: 2012Q4

REPORT INFORMATION
  Report Type: 
  Country: US (occurrence: US)
  Receive Date: 20121024
  Receipt Date: 20121024
  Transmission Date: 20130627
  Serious: Yes (Disabling, Other)
  Sender: FDA-Public Use
  Company Number: US-BAXTER-2012BAX020991

PATIENT

DRUGS (3)
  1. CYCLOPHOSPHAMIDE FOR INJECTION, USP [Suspect]
     Indication: METASTATIC MELANOMA
  2. FLUDARABINE [Suspect]
     Indication: METASTATIC MELANOMA
  3. UNSPECIFIED INGREDIENT [Suspect]
     Indication: METASTATIC MELANOMA
     Route: 042

REACTIONS (1)
  - Deafness [Unknown]
